FAERS Safety Report 5703591-3 (Version None)
Quarter: 2008Q2

REPORT INFORMATION
  Report Type: 
  Country: None (occurrence: None)
  Receive Date: 20080411
  Receipt Date: 20080403
  Transmission Date: 20081010
  Serious: Yes (Congenital Anomaly, Other)
  Sender: FDA-Public Use
  Company Number: FR-ABBOTT-08P-056-0445300-00

PATIENT
  Sex: Male

DRUGS (2)
  1. DEPAKENE [Suspect]
     Indication: DRUG EXPOSURE DURING PREGNANCY
     Route: 064
  2. FLUOXETINE HYDROCHLORIDE [Suspect]
     Indication: DRUG EXPOSURE DURING PREGNANCY
     Route: 064

REACTIONS (14)
  - ABNORMAL PALMAR/PLANTAR CREASES [None]
  - BLOOD LACTIC ACID INCREASED [None]
  - BRADYCARDIA FOETAL [None]
  - BRAIN MALFORMATION [None]
  - CEREBRAL VENTRICLE DILATATION [None]
  - DRUG EXPOSURE DURING PREGNANCY [None]
  - DYSMORPHISM [None]
  - FOETAL CEREBROVASCULAR DISORDER [None]
  - LABORATORY TEST ABNORMAL [None]
  - NEONATAL ASPIRATION [None]
  - NEONATAL RESPIRATORY DISTRESS SYNDROME [None]
  - PLAGIOCEPHALY [None]
  - PSYCHOMOTOR SKILLS IMPAIRED [None]
  - TOOTH DEVELOPMENT DISORDER [None]
